FAERS Safety Report 16929988 (Version 2)
Quarter: 2019Q4

REPORT INFORMATION
  Report Type: Spontaneous
  Country: JP (occurrence: JP)
  Receive Date: 20191017
  Receipt Date: 20191220
  Transmission Date: 20200122
  Serious: Yes (Life-Threatening, Hospitalization, Other)
  Sender: FDA-Public Use
  Company Number: JP-PFIZER INC-2019320031

PATIENT
  Age: 61 Year
  Sex: Male
  Weight: 49.6 kg

DRUGS (2)
  1. BENEFIX [Suspect]
     Active Substance: COAGULATION FACTOR IX RECOMBINANT HUMAN\ISOPROPYL ALCOHOL
     Indication: HAEMOPHILIA
     Dosage: 1000 E , 1X/DAY
     Route: 042
     Dates: start: 20190603
  2. BENEFIX [Suspect]
     Active Substance: COAGULATION FACTOR IX RECOMBINANT HUMAN\ISOPROPYL ALCOHOL
     Dosage: 3000 IU PER DAY ON MONDAY, WEDNESDAY, FRIDAY
     Route: 042
     Dates: start: 2019

REACTIONS (6)
  - Shock [Recovered/Resolved]
  - Dieulafoy^s vascular malformation [Unknown]
  - Varices oesophageal [Unknown]
  - Gastrointestinal haemorrhage [Recovered/Resolved]
  - Haematemesis [Recovered/Resolved]
  - Gastritis erosive [Unknown]

NARRATIVE: CASE EVENT DATE: 20190615
